FAERS Safety Report 9393010 (Version 1)
Quarter: 2013Q3

REPORT INFORMATION
  Report Type: Spontaneous
  Country: FR (occurrence: FR)
  Receive Date: 20130710
  Receipt Date: 20130710
  Transmission Date: 20140515
  Serious: Yes (Hospitalization)
  Sender: FDA-Public Use
  Company Number: FR-ASTRAZENECA-2013SE50657

PATIENT
  Age: 67 Year
  Sex: Male

DRUGS (3)
  1. BRILIQUE [Suspect]
     Indication: CORONARY ARTERY DISEASE
     Route: 048
     Dates: start: 20130603, end: 201306
  2. BRILIQUE [Suspect]
     Indication: CORONARY ARTERY DISEASE
     Route: 048
     Dates: start: 201306, end: 20130607
  3. KARDEGIC [Concomitant]

REACTIONS (2)
  - Thrombosis in device [Recovered/Resolved with Sequelae]
  - Dyspnoea [Recovered/Resolved]
